FAERS Safety Report 4579347-4 (Version None)
Quarter: 2005Q1

REPORT INFORMATION
  Report Type: 
  Country: None (occurrence: None)
  Receive Date: 20050209
  Receipt Date: 20050204
  Transmission Date: 20050727
  Serious: Yes (Other)
  Sender: FDA-Public Use
  Company Number: 2005-BP-00049RO

PATIENT
  Age: 64 Year
  Sex: Female

DRUGS (3)
  1. PREDNISONE TAB [Suspect]
     Indication: RENAL TRANSPLANT
     Dates: start: 20020218, end: 20040609
  2. BELATRACEPT [Suspect]
     Indication: RENAL TRANSPLANT
     Dosage: 5 MG/KG EVERY 8 WEEKS (1 IN 8 WK), IV
     Route: 042
  3. MYCOPHENOLATE MOFETIL (MYCOPHONOLATE MOFETIL) [Concomitant]
     Indication: RENAL TRANSPLANT
     Dates: start: 20020216

REACTIONS (3)
  - BREAST CANCER [None]
  - DIABETES MELLITUS [None]
  - LOCALISED INFECTION [None]
